FAERS Safety Report 21070125 (Version 1)
Quarter: 2022Q3

REPORT INFORMATION
  Report Type: Spontaneous
  Country: CA (occurrence: CA)
  Receive Date: 20220712
  Receipt Date: 20220712
  Transmission Date: 20221027
  Serious: Yes (Death, Life-Threatening)
  Sender: FDA-Public Use
  Company Number: CA-PFIZER INC-202200948681

PATIENT
  Age: 83 Year
  Sex: Male

DRUGS (10)
  1. DILANTIN [Suspect]
     Active Substance: PHENYTOIN
     Dosage: 1400 MG (ONCE)
     Route: 042
  2. ACETAMINOPHEN [Concomitant]
     Active Substance: ACETAMINOPHEN
  3. ATORVASTATIN [Concomitant]
     Active Substance: ATORVASTATIN
     Route: 065
  4. DECADRON [Concomitant]
     Active Substance: DEXAMETHASONE
  5. HEPARIN [Concomitant]
     Active Substance: HEPARIN SODIUM
     Route: 042
  6. INSULIN NOS [Concomitant]
     Active Substance: INSULIN NOS
  7. LANSOPRAZOLE [Concomitant]
     Active Substance: LANSOPRAZOLE
  8. LEVETIRACETAM [Concomitant]
     Active Substance: LEVETIRACETAM
     Route: 065
  9. MAGNESIUM [Concomitant]
     Active Substance: MAGNESIUM
  10. METFORMIN [Concomitant]
     Active Substance: METFORMIN HYDROCHLORIDE

REACTIONS (8)
  - Off label use [Fatal]
  - Death [Fatal]
  - Apnoea [Fatal]
  - Bradycardia [Fatal]
  - Cardiac arrest [Fatal]
  - Endotracheal intubation [Fatal]
  - Mechanical ventilation [Fatal]
  - Oculocephalogyric reflex absent [Fatal]
